FAERS Safety Report 24109415 (Version 7)
Quarter: 2025Q1

REPORT INFORMATION
  Report Type: Report from Study
  Country: US (occurrence: US)
  Receive Date: 20240718
  Receipt Date: 20250326
  Transmission Date: 20250409
  Serious: Yes (Hospitalization, Other)
  Sender: TAKEDA
  Company Number: US-TAKEDA-2024TUS029058

PATIENT
  Age: 0 Year
  Sex: Male
  Weight: 8.57 kg

DRUGS (18)
  1. HUMAN IMMUNOGLOBULIN G [Suspect]
     Active Substance: HUMAN IMMUNOGLOBULIN G
     Indication: Combined immunodeficiency
     Dosage: 3.5 GRAM, Q4WEEKS
     Dates: start: 20240104
  2. HUMAN IMMUNOGLOBULIN G [Suspect]
     Active Substance: HUMAN IMMUNOGLOBULIN G
     Dosage: 5 GRAM, Q4WEEKS
  3. HUMAN IMMUNOGLOBULIN G [Suspect]
     Active Substance: HUMAN IMMUNOGLOBULIN G
     Dosage: 7.5 GRAM, Q4WEEKS
  4. HUMAN IMMUNOGLOBULIN G [Suspect]
     Active Substance: HUMAN IMMUNOGLOBULIN G
     Dosage: 10 GRAM, Q4WEEKS
  5. ACETAMINOPHEN [Concomitant]
     Active Substance: ACETAMINOPHEN
  6. EPINEPHRINE [Concomitant]
     Active Substance: EPINEPHRINE
  7. SODIUM CHLORIDE [Concomitant]
     Active Substance: SODIUM CHLORIDE
  8. HEPARIN [Concomitant]
     Active Substance: HEPARIN SODIUM
  9. LIDOCAINE [Concomitant]
     Active Substance: LIDOCAINE
  10. CHLORHEXIDINE GLUCONATE [Concomitant]
     Active Substance: CHLORHEXIDINE GLUCONATE
  11. DIPHENHYDRAMINE [Concomitant]
     Active Substance: DIPHENHYDRAMINE
  12. NYSTATIN [Concomitant]
     Active Substance: NYSTATIN
  13. VORICONAZOLE [Concomitant]
     Active Substance: VORICONAZOLE
  14. CORTEF [Concomitant]
     Active Substance: HYDROCORTISONE
  15. CYCLOSPORINE [Concomitant]
     Active Substance: CYCLOSPORINE
  16. VALTREX [Concomitant]
     Active Substance: VALACYCLOVIR HYDROCHLORIDE
  17. PREVYMIS [Concomitant]
     Active Substance: LETERMOVIR
  18. TRIAMCINOLONE ACETONIDE [Concomitant]
     Active Substance: TRIAMCINOLONE ACETONIDE

REACTIONS (6)
  - Anti B antibody positive [Unknown]
  - Autoimmune haemolytic anaemia [Unknown]
  - Poor venous access [Unknown]
  - Rhinovirus infection [Unknown]
  - Dermatitis allergic [Unknown]
  - Rash [Unknown]

NARRATIVE: CASE EVENT DATE: 20240314
